FAERS Safety Report 9804171 (Version 1)
Quarter: 2014Q1

REPORT INFORMATION
  Report Type: Report from Study
  Country: NL (occurrence: NL)
  Receive Date: 20140108
  Receipt Date: 20140108
  Transmission Date: 20141002
  Serious: Yes (Congenital Anomaly)
  Sender: FDA-Public Use
  Company Number: PHHY2014NL001150

PATIENT
  Age: 0 Day
  Sex: Female
  Weight: 3 kg

DRUGS (3)
  1. CITALOPRAM [Suspect]
     Dosage: 10 MG, QD
     Route: 064
     Dates: start: 2011
  2. CITALOPRAM [Suspect]
     Dosage: 15 MG, QD
     Route: 064
  3. FOLIUMZUUR [Concomitant]
     Dosage: 1 DF, UNK
     Route: 064

REACTIONS (1)
  - Atrial septal defect [Unknown]
